FAERS Safety Report 10348663 (Version 1)
Quarter: 2014Q3

REPORT INFORMATION
  Report Type: Spontaneous
  Country: NL (occurrence: None)
  Receive Date: 20140725
  Receipt Date: 20140725
  Transmission Date: 20150326
  Serious: Yes (Hospitalization)
  Sender: FDA-Public Use
  Company Number: ABR_01739_2014

PATIENT
  Age: 60 Year
  Sex: Female

DRUGS (2)
  1. ERYTHROMYCIN ETHYLSUCCINATE. [Suspect]
     Active Substance: ERYTHROMYCIN ETHYLSUCCINATE
     Indication: ORAL INFECTION
     Dates: start: 20140523
  2. XYREM [Suspect]
     Active Substance: SODIUM OXYBATE
     Indication: NARCOLEPSY
     Dosage: DF [500 MG/ML; TIES PER 3.75 ML]
     Dates: start: 201112

REACTIONS (3)
  - Drug interaction [None]
  - Coma [None]
  - Tremor [None]

NARRATIVE: CASE EVENT DATE: 20140525
